FAERS Safety Report 8996631 (Version 3)
Quarter: 2013Q3

REPORT INFORMATION
  Report Type: Spontaneous
  Country: BR (occurrence: BR)
  Receive Date: 20130104
  Receipt Date: 20130725
  Transmission Date: 20140515
  Serious: Yes (Life-Threatening, Hospitalization, Disabling)
  Sender: FDA-Public Use
  Company Number: BR-ELI_LILLY_AND_COMPANY-BR201301000074

PATIENT
  Age: 68 Year
  Sex: Male

DRUGS (2)
  1. CIALIS [Suspect]
     Indication: BENIGN PROSTATIC HYPERPLASIA
     Dosage: 5 MG, QOD
     Route: 048
     Dates: start: 20120629
  2. VITAMIN E                          /00110501/ [Concomitant]
     Dosage: 400 UNK, UNK
     Route: 065

REACTIONS (7)
  - Atrial flutter [Not Recovered/Not Resolved]
  - Cardiac failure [Not Recovered/Not Resolved]
  - Sensation of heaviness [Not Recovered/Not Resolved]
  - Penile erythema [Not Recovered/Not Resolved]
  - Inguinal hernia [Not Recovered/Not Resolved]
  - Umbilical hernia [Not Recovered/Not Resolved]
  - Inappropriate schedule of drug administration [Unknown]
